FAERS Safety Report 23260422 (Version 1)
Quarter: 2023Q4

REPORT INFORMATION
  Report Type: Spontaneous
  Country: GB (occurrence: GB)
  Receive Date: 20231205
  Receipt Date: 20231205
  Transmission Date: 20240109
  Serious: Yes (Other)
  Sender: FDA-Public Use
  Company Number: GB-Vifor (International) Inc.-VIT-2023-09064

PATIENT
  Age: 68 Year
  Sex: Male
  Weight: 100.6 kg

DRUGS (21)
  1. TAVNEOS [Suspect]
     Active Substance: AVACOPAN
     Indication: Microscopic polyangiitis
     Dosage: 30 MILLIGRAM, QD
     Route: 048
     Dates: start: 20230829, end: 20231003
  2. CYCLOPHOSPHAMIDE [Suspect]
     Active Substance: CYCLOPHOSPHAMIDE
     Indication: Microscopic polyangiitis
     Dosage: OD
     Route: 065
     Dates: start: 20230808, end: 20230822
  3. CYCLOPHOSPHAMIDE [Suspect]
     Active Substance: CYCLOPHOSPHAMIDE
     Dosage: OD
     Route: 065
     Dates: start: 20230822, end: 20231003
  4. ATOVAQUONE [Suspect]
     Active Substance: ATOVAQUONE
     Indication: Microscopic polyangiitis
     Dosage: BD
     Route: 048
     Dates: start: 20230815, end: 20231003
  5. FELODIPINE [Concomitant]
     Active Substance: FELODIPINE
     Indication: Product used for unknown indication
     Dosage: OD
     Route: 048
  6. FELODIPINE [Concomitant]
     Active Substance: FELODIPINE
     Dosage: OD
     Route: 065
     Dates: start: 20230629
  7. IRBESARTAN [Concomitant]
     Active Substance: IRBESARTAN
     Indication: Product used for unknown indication
     Dosage: OD
     Route: 065
  8. IRBESARTAN [Concomitant]
     Active Substance: IRBESARTAN
     Dosage: OD
     Route: 048
     Dates: start: 20230629, end: 20230731
  9. IRBESARTAN [Concomitant]
     Active Substance: IRBESARTAN
     Dosage: OD
     Route: 048
     Dates: start: 20230920
  10. CALCIUM CARBONATE\CHOLECALCIFEROL [Concomitant]
     Active Substance: CALCIUM CARBONATE\CHOLECALCIFEROL
     Indication: Product used for unknown indication
     Dosage: BD
     Route: 065
     Dates: start: 20230804
  11. DOXAZOSIN [Concomitant]
     Active Substance: DOXAZOSIN MESYLATE
     Indication: Product used for unknown indication
     Dosage: OD
     Route: 048
     Dates: start: 20230905, end: 20230919
  12. BUTYLSCOPOLAMINE BROMIDE [Concomitant]
     Active Substance: BUTYLSCOPOLAMINE BROMIDE
     Indication: Product used for unknown indication
     Dosage: PRN
     Route: 065
     Dates: start: 20230629, end: 20230731
  13. OMEPRAZOLE [Concomitant]
     Active Substance: OMEPRAZOLE
     Indication: Product used for unknown indication
     Dosage: OD
     Route: 048
     Dates: start: 20230804
  14. PREDNISOLONE [Concomitant]
     Active Substance: PREDNISOLONE
     Indication: Product used for unknown indication
     Dosage: OD
     Route: 048
     Dates: start: 20230807, end: 20230821
  15. PREDNISOLONE [Concomitant]
     Active Substance: PREDNISOLONE
     Dosage: OD
     Route: 048
     Dates: start: 20230822, end: 20230823
  16. PREDNISOLONE [Concomitant]
     Active Substance: PREDNISOLONE
     Dosage: OD
     Route: 048
     Dates: start: 20230823, end: 20230830
  17. PREDNISOLONE [Concomitant]
     Active Substance: PREDNISOLONE
     Dosage: OD
     Route: 048
     Dates: start: 20230830, end: 20230926
  18. PREDNISOLONE [Concomitant]
     Active Substance: PREDNISOLONE
     Dosage: OD
     Route: 048
     Dates: start: 20231003, end: 20231004
  19. PREDNISOLONE [Concomitant]
     Active Substance: PREDNISOLONE
     Dosage: OD
     Route: 048
     Dates: start: 20231004, end: 20231024
  20. PREDNISOLONE [Concomitant]
     Active Substance: PREDNISOLONE
     Dosage: OD
     Route: 048
     Dates: start: 20231024, end: 20231114
  21. PREDNISOLONE [Concomitant]
     Active Substance: PREDNISOLONE
     Dosage: OD
     Route: 048
     Dates: start: 20231114

REACTIONS (5)
  - Rash [Recovering/Resolving]
  - Serum ferritin increased [Recovering/Resolving]
  - Drug-induced liver injury [Recovering/Resolving]
  - Cholestasis [Recovering/Resolving]
  - Aspartate aminotransferase increased [Recovering/Resolving]

NARRATIVE: CASE EVENT DATE: 20230101
